FAERS Safety Report 4384764-1 (Version None)
Quarter: 2004Q2

REPORT INFORMATION
  Report Type: 
  Country: None (occurrence: None)
  Receive Date: 20040621
  Receipt Date: 20040609
  Transmission Date: 20050107
  Serious: Yes (Life-Threatening, Hospitalization)
  Sender: FDA-Public Use
  Company Number: ES-2004-026695

PATIENT
  Age: 75 Year
  Sex: Female
  Weight: 60 kg

DRUGS (1)
  1. ULTRAVIST / CLAROGRAF (500 ML) (IOPROMIDE) INJECTION [Suspect]
     Indication: X-RAY
     Dosage: 150 MG, 1 DOSE, INTRAVENOUS
     Route: 042
     Dates: start: 20040421, end: 20040412

REACTIONS (1)
  - ANAPHYLACTIC SHOCK [None]
